FAERS Safety Report 7311540-X (Version None)
Quarter: 2011Q1

REPORT INFORMATION
  Report Type: 
  Country: None (occurrence: None)
  Receive Date: 20110224
  Receipt Date: 20110220
  Transmission Date: 20110831
  Serious: Yes (Other)
  Sender: FDA-Public Use
  Company Number: US-PFIZER INC-2011037101

PATIENT
  Sex: Male
  Weight: 108 kg

DRUGS (8)
  1. CHANTIX [Suspect]
     Indication: SMOKING CESSATION THERAPY
     Dosage: 0.5 MG, 1X/DAY
     Route: 048
     Dates: start: 20110127
  2. LYRICA [Concomitant]
     Indication: TARSAL TUNNEL SYNDROME
     Dosage: 600 MG, DAILY
  3. PRILOSEC [Concomitant]
     Indication: GASTROOESOPHAGEAL REFLUX DISEASE
     Dosage: 20 MG, 1X/DAY
  4. DIAZEPAM [Concomitant]
     Indication: MENIERE'S DISEASE
     Dosage: 20 MG, DAILY
  5. CELEBREX [Concomitant]
     Indication: BACK PAIN
     Dosage: 50 MG, DAILY
  6. CELEBREX [Concomitant]
     Indication: ARTHRALGIA
  7. CHANTIX [Suspect]
     Dosage: 1 MG, 2X/DAY
     Route: 048
  8. CELEBREX [Concomitant]

REACTIONS (3)
  - BALANCE DISORDER [None]
  - MUSCULAR WEAKNESS [None]
  - BONE PAIN [None]
